FAERS Safety Report 8300410-6 (Version None)
Quarter: 2012Q2

REPORT INFORMATION
  Report Type: 
  Country: None (occurrence: None)
  Receive Date: 20120420
  Receipt Date: 20120412
  Transmission Date: 20120825
  Serious: Yes (Life-Threatening, Hospitalization)
  Sender: FDA-Public Use
  Company Number: GB-PFIZER INC-2012093787

PATIENT
  Age: 65 Year
  Sex: Female

DRUGS (3)
  1. VINORELBINE [Suspect]
     Route: 048
  2. DOMPERIDONE [Concomitant]
     Indication: NAUSEA
     Dosage: 10 MG, 4X/DAY
     Route: 048
  3. CARBOPLATIN [Suspect]
     Indication: LUNG SQUAMOUS CELL CARCINOMA STAGE UNSPECIFIED
     Dosage: UNK
     Route: 042

REACTIONS (2)
  - NEUTROPENIC SEPSIS [None]
  - PANCYTOPENIA [None]
